FAERS Safety Report 22260825 (Version 1)
Quarter: 2023Q2

REPORT INFORMATION
  Report Type: Spontaneous
  Country: SI (occurrence: SI)
  Receive Date: 20230427
  Receipt Date: 20230427
  Transmission Date: 20230722
  Serious: No
  Sender: FDA-Public Use
  Company Number: SI-PFIZER INC-PV202300074157

PATIENT
  Age: 17 Year
  Sex: Female

DRUGS (1)
  1. PAXLOVID [Suspect]
     Active Substance: NIRMATRELVIR\RITONAVIR
     Indication: COVID-19 treatment

REACTIONS (1)
  - Incorrect route of product administration [Unknown]
